FAERS Safety Report 12772909 (Version 1)
Quarter: 2016Q3

REPORT INFORMATION
  Report Type: Report from Study
  Country: BR (occurrence: BR)
  Receive Date: 20160922
  Receipt Date: 20160922
  Transmission Date: 20161109
  Serious: Yes (Other)
  Sender: FDA-Public Use
  Company Number: BR-ABBVIE-16K-020-1730686-00

PATIENT
  Sex: Female
  Weight: 52 kg

DRUGS (2)
  1. LEFLUNOMIDE. [Concomitant]
     Active Substance: LEFLUNOMIDE
     Indication: ARTHRITIS
     Route: 048
     Dates: start: 2009
  2. HUMIRA [Suspect]
     Active Substance: ADALIMUMAB
     Indication: RHEUMATOID ARTHRITIS
     Route: 058
     Dates: start: 20130510, end: 20160729

REACTIONS (5)
  - Synovial cyst [Recovering/Resolving]
  - Post procedural complication [Recovering/Resolving]
  - Hand deformity [Unknown]
  - Hormone level abnormal [Unknown]
  - Mobility decreased [Recovering/Resolving]
